FAERS Safety Report 9495121 (Version 3)
Quarter: 2019Q3

REPORT INFORMATION
  Report Type: Spontaneous
  Country: US (occurrence: US)
  Receive Date: 20130903
  Receipt Date: 20190715
  Transmission Date: 20191005
  Serious: Yes (Other)
  Sender: FDA-Public Use
  Company Number: US-SANOFI-AVENTIS-2013SA086675

PATIENT
  Age: 67 Year
  Sex: Male
  Weight: 95.2 kg

DRUGS (2)
  1. LANTUS SOLOSTAR [Suspect]
     Active Substance: INSULIN GLARGINE
     Indication: TYPE 2 DIABETES MELLITUS
     Dosage: 55 DF,BID 55 UNITS IN THE MORNING AND AT BEDTIME
     Route: 058
     Dates: start: 2012
  2. LANTUS SOLOSTAR [Suspect]
     Active Substance: INSULIN GLARGINE
     Dosage: 30 DF,BID
     Route: 058

REACTIONS (9)
  - Hyperhidrosis [Unknown]
  - Road traffic accident [Unknown]
  - Product storage error [Unknown]
  - Eye operation [Unknown]
  - Dizziness [Unknown]
  - Eye disorder [Unknown]
  - Insomnia [Unknown]
  - Inappropriate schedule of product administration [Unknown]
  - Weight decreased [Unknown]

NARRATIVE: CASE EVENT DATE: 2012
